FAERS Safety Report 10047049 (Version 1)
Quarter: 2014Q1

REPORT INFORMATION
  Report Type: Spontaneous
  Country: US (occurrence: US)
  Receive Date: 20140331
  Receipt Date: 20140331
  Transmission Date: 20141002
  Serious: No
  Sender: FDA-Public Use
  Company Number: US-MYLANLABS-2013S1003180

PATIENT
  Age: 80 Year
  Sex: Female
  Weight: 57.15 kg

DRUGS (2)
  1. FENTANYL TRANSDERMAL SYSTEM [Suspect]
     Indication: ARTHRALGIA
     Dosage: CHANGED Q. 48 HOURS
     Route: 062
     Dates: start: 201205, end: 201301
  2. FENTANYL TRANSDERMAL SYSTEM [Suspect]
     Indication: NEURALGIA
     Dosage: CHANGED Q. 48 HOURS
     Route: 062
     Dates: start: 201205, end: 201301

REACTIONS (4)
  - Application site pain [Recovered/Resolved]
  - Application site urticaria [Recovered/Resolved]
  - Application site pruritus [Recovered/Resolved]
  - Reaction to drug excipients [Recovered/Resolved]
